FAERS Safety Report 8829870 (Version 1)
Quarter: 2012Q4

REPORT INFORMATION
  Report Type: Spontaneous
  Country: US (occurrence: None)
  Receive Date: 20121005
  Receipt Date: 20121005
  Transmission Date: 20130627
  Serious: Yes (Death)
  Sender: FDA-Public Use
  Company Number: None

PATIENT
  Age: 74 Year
  Sex: Male
  Weight: 65.41 kg

DRUGS (1)
  1. BYETTA [Suspect]
     Route: 030

REACTIONS (1)
  - Pancreatitis [None]
